FAERS Safety Report 23158574 (Version 1)
Quarter: 2023Q4

REPORT INFORMATION
  Report Type: Spontaneous
  Country: BT (occurrence: BT)
  Receive Date: 20231108
  Receipt Date: 20231108
  Transmission Date: 20240110
  Serious: Yes (Death)
  Sender: FDA-Public Use
  Company Number: BT-KAMADA LIMITED-2023-KAM-BT000239

PATIENT

DRUGS (7)
  1. HUMAN RABIES VIRUS IMMUNE GLOBULIN [Suspect]
     Active Substance: HUMAN RABIES VIRUS IMMUNE GLOBULIN
     Indication: Rabies immunisation
     Dosage: 20 IU/KG
     Route: 030
  2. TETANUS TOXOIDS [Suspect]
     Active Substance: TETANUS TOXOIDS
     Indication: Animal bite
     Dosage: UNK
     Route: 065
  3. RABIES VACCINE [Suspect]
     Active Substance: RABIES VACCINE
     Dosage: UNK
     Route: 065
  4. CEFTRIAXONE [Concomitant]
     Active Substance: CEFTRIAXONE\CEFTRIAXONE SODIUM
     Dosage: 2 G
     Route: 042
  5. AMPICILLIN [Concomitant]
     Active Substance: AMPICILLIN
     Dosage: 2 G, Q6HR
     Route: 042
  6. ACYCLOVIR [Concomitant]
     Active Substance: ACYCLOVIR
     Dosage: 500 MG, Q8HR
     Route: 042
  7. RIBAVIRIN [Concomitant]
     Active Substance: RIBAVIRIN
     Dosage: 1 G
     Route: 042

REACTIONS (3)
  - Disease progression [Fatal]
  - Inappropriate schedule of product administration [Unknown]
  - Drug ineffective for unapproved indication [Unknown]
